FAERS Safety Report 21396340 (Version 1)
Quarter: 2022Q3

REPORT INFORMATION
  Report Type: Report from Study
  Country: IN (occurrence: IN)
  Receive Date: 20220930
  Receipt Date: 20220930
  Transmission Date: 20221027
  Serious: Yes (Other)
  Sender: FDA-Public Use
  Company Number: IN-NOVARTISPH-PHHY2018IN179920

PATIENT
  Age: 44 Year
  Sex: Male
  Weight: 40 kg

DRUGS (4)
  1. TASIGNA [Suspect]
     Active Substance: NILOTINIB
     Indication: Chronic myeloid leukaemia
     Dosage: 400 MG, BID
     Route: 048
     Dates: start: 20181004, end: 201811
  2. TASIGNA [Suspect]
     Active Substance: NILOTINIB
     Dosage: 200 MG, BID
     Route: 048
     Dates: start: 201811
  3. TASIGNA [Suspect]
     Active Substance: NILOTINIB
     Dosage: 400 MG, BID
     Route: 048
     Dates: start: 201810, end: 202209
  4. IMATINIB [Suspect]
     Active Substance: IMATINIB
     Indication: Product used for unknown indication
     Dosage: UNK
     Route: 065

REACTIONS (14)
  - Drug intolerance [Not Recovered/Not Resolved]
  - Cough [Recovering/Resolving]
  - Pyrexia [Recovering/Resolving]
  - Pigmentation disorder [Not Recovered/Not Resolved]
  - Infection [Unknown]
  - Pruritus [Unknown]
  - Acne [Not Recovered/Not Resolved]
  - Arthralgia [Not Recovered/Not Resolved]
  - Hypersensitivity [Not Recovered/Not Resolved]
  - Haemorrhoids [Not Recovered/Not Resolved]
  - Decreased appetite [Unknown]
  - Asthenia [Recovering/Resolving]
  - Weight decreased [Unknown]
  - Restlessness [Recovering/Resolving]

NARRATIVE: CASE EVENT DATE: 20181004
